FAERS Safety Report 20091766 (Version 29)
Quarter: 2025Q2

REPORT INFORMATION
  Report Type: Report from Study
  Country: US (occurrence: US)
  Receive Date: 20211119
  Receipt Date: 20250430
  Transmission Date: 20250717
  Serious: Yes (Other)
  Sender: TAKEDA
  Company Number: US-TAKEDA-US202031640

PATIENT
  Age: 76 Year
  Sex: Female

DRUGS (2)
  1. HUMAN IMMUNOGLOBULIN G\HYALURONIDASE RECOMBINANT HUMAN [Suspect]
     Active Substance: HUMAN IMMUNOGLOBULIN G\HYALURONIDASE (HUMAN RECOMBINANT)
     Indication: Primary immunodeficiency syndrome
  2. HUMAN IMMUNOGLOBULIN G\HYALURONIDASE RECOMBINANT HUMAN [Suspect]
     Active Substance: HUMAN IMMUNOGLOBULIN G\HYALURONIDASE (HUMAN RECOMBINANT)
     Indication: Immunodeficiency common variable

REACTIONS (35)
  - Pneumonia [Recovered/Resolved]
  - Vitamin D increased [Unknown]
  - Eye irritation [Unknown]
  - Poor quality sleep [Unknown]
  - Sleep apnoea syndrome [Unknown]
  - Ear pain [Unknown]
  - Hordeolum [Unknown]
  - Sinusitis [Recovered/Resolved]
  - Pulmonary function test decreased [Unknown]
  - Peripheral swelling [Unknown]
  - Limb discomfort [Unknown]
  - Contusion [Unknown]
  - General physical health deterioration [Unknown]
  - Chronic sinusitis [Unknown]
  - Limb injury [Unknown]
  - Impaired healing [Unknown]
  - Inappropriate schedule of product administration [Unknown]
  - Product dose omission issue [Unknown]
  - Balance disorder [Unknown]
  - Vertigo [Unknown]
  - Malaise [Recovered/Resolved]
  - Blood pressure increased [Unknown]
  - Dizziness [Unknown]
  - Fatigue [Unknown]
  - Stress [Unknown]
  - Arthropod sting [Unknown]
  - Fall [Unknown]
  - Neck injury [Unknown]
  - Gastroenteritis viral [Unknown]
  - COVID-19 [Recovered/Resolved]
  - Synovial cyst [Unknown]
  - Neck pain [Unknown]
  - Muscle spasms [Unknown]
  - Pain in extremity [Unknown]
  - Arthralgia [Not Recovered/Not Resolved]

NARRATIVE: CASE EVENT DATE: 20240314
